FAERS Safety Report 8189241-8 (Version None)
Quarter: 2012Q1

REPORT INFORMATION
  Report Type: 
  Country: None (occurrence: None)
  Receive Date: 20120306
  Receipt Date: 20120306
  Transmission Date: 20120608
  Serious: Yes (Hospitalization)
  Sender: FDA-Public Use
  Company Number: None

PATIENT
  Age: 62 Year
  Sex: Female

DRUGS (1)
  1. NOVOLIN 70/30 [Suspect]
     Indication: TYPE 2 DIABETES MELLITUS
     Dosage: INJECT 40 UNITS IN THE AM AND 20 UNITS IN THE PM AS DIRECTED
     Dates: start: 20120130

REACTIONS (3)
  - PRODUCT CONTAINER SEAL ISSUE [None]
  - BLOOD GLUCOSE INCREASED [None]
  - PRODUCT QUALITY ISSUE [None]
